FAERS Safety Report 6732308-9 (Version None)
Quarter: 2010Q2

REPORT INFORMATION
  Report Type: 
  Country: None (occurrence: None)
  Receive Date: 20100519
  Receipt Date: 20100512
  Transmission Date: 20101027
  Serious: Yes (Hospitalization)
  Sender: FDA-Public Use
  Company Number: US-ALEXION-A201000476

PATIENT
  Sex: Female

DRUGS (6)
  1. SOLIRIS [Suspect]
     Indication: PAROXYSMAL NOCTURNAL HAEMOGLOBINURIA
     Dosage: 600 MG, QW
     Route: 042
     Dates: start: 20090903, end: 20090926
  2. SOLIRIS [Suspect]
     Dosage: 900 MG, Q2W
     Route: 042
     Dates: start: 20090930, end: 20100113
  3. LASIX [Concomitant]
     Dosage: UNK
  4. PREDNISONE [Concomitant]
     Dosage: UNK
  5. THYROID PREPARATIONS [Concomitant]
     Dosage: UNK
  6. ANTIHYPERTENSIVES [Concomitant]
     Dosage: UNK

REACTIONS (8)
  - ARTHRALGIA [None]
  - BACK PAIN [None]
  - DYSPNOEA [None]
  - FALL [None]
  - LOSS OF CONSCIOUSNESS [None]
  - MUSCLE ATROPHY [None]
  - MYALGIA [None]
  - PELVIC FRACTURE [None]
